FAERS Safety Report 24280220 (Version 2)
Quarter: 2024Q3

REPORT INFORMATION
  Report Type: Spontaneous
  Country: US (occurrence: US)
  Receive Date: 20240904
  Receipt Date: 20240916
  Transmission Date: 20241017
  Serious: Yes (Other)
  Sender: TEVA
  Company Number: US-TEVA-VS-3238217

PATIENT
  Age: 53 Year
  Sex: Female

DRUGS (2)
  1. ROMIDEPSIN [Suspect]
     Active Substance: ROMIDEPSIN
     Indication: Cutaneous T-cell lymphoma
     Dosage: RECEIVED ROMIDEPSIN 5-CYCLES
     Route: 065
  2. DOXORUBICIN [Suspect]
     Active Substance: DOXORUBICIN
     Indication: Cutaneous T-cell lymphoma
     Dosage: RECEIVED DOXORUBICIN-LIPOSOMAL 33 DOSES
     Route: 065

REACTIONS (3)
  - Drug ineffective [Unknown]
  - Oral disorder [Recovered/Resolved]
  - Mucosal pigmentation [Recovered/Resolved]
